FAERS Safety Report 6266564-0 (Version None)
Quarter: 2009Q3

REPORT INFORMATION
  Report Type: 
  Country: None (occurrence: None)
  Receive Date: 20090710
  Receipt Date: 20090627
  Transmission Date: 20100115
  Serious: Yes (Hospitalization)
  Sender: FDA-Public Use
  Company Number: IDR-00274

PATIENT
  Sex: Male

DRUGS (4)
  1. INDERAL LA [Suspect]
     Indication: CARDIAC DISORDER
     Dosage: ONE CAPSULE BID
  2. INDERAL LA [Suspect]
     Indication: MIGRAINE
     Dosage: ONE CAPSULE BID
  3. PROPRANOLOL HYDROCHLORIDE [Suspect]
     Indication: CARDIAC DISORDER
  4. PROPRANOLOL HYDROCHLORIDE [Suspect]
     Indication: MIGRAINE

REACTIONS (2)
  - HEART RATE INCREASED [None]
  - PALPITATIONS [None]
